FAERS Safety Report 24278032 (Version 3)
Quarter: 2024Q3

REPORT INFORMATION
  Report Type: Spontaneous
  Country: US (occurrence: US)
  Receive Date: 20240903
  Receipt Date: 20240916
  Transmission Date: 20241017
  Serious: No
  Sender: AMGEN
  Company Number: US-AMGEN-USASP2024174014

PATIENT
  Age: 28 Year
  Sex: Female

DRUGS (2)
  1. RAYOS [Suspect]
     Active Substance: PREDNISONE
     Indication: Product used for unknown indication
     Dosage: UNK
     Route: 065
  2. RAYOS [Suspect]
     Active Substance: PREDNISONE
     Dosage: UNK, (DOSE CHANGE)
     Route: 065
     Dates: start: 2024

REACTIONS (1)
  - Product physical issue [Unknown]

NARRATIVE: CASE EVENT DATE: 20240101
